FAERS Safety Report 6237695-6 (Version None)
Quarter: 2009Q2

REPORT INFORMATION
  Report Type: 
  Country: None (occurrence: None)
  Receive Date: 20090617
  Receipt Date: 20060418
  Transmission Date: 20091009
  Serious: Yes (Hospitalization)
  Sender: FDA-Public Use
  Company Number: BI702209

PATIENT
  Age: 42 Year
  Sex: Female
  Weight: 58 kg

DRUGS (3)
  1. AMEVIVE [Suspect]
     Indication: PSORIASIS
     Dosage: 15 MG, WEEKLY; INTRAMUSCULAR
     Route: 030
     Dates: start: 20030528, end: 20030814
  2. LITHIUM (LITHIUM ASPARTATE) [Concomitant]
  3. METHOTREXATE [Concomitant]

REACTIONS (5)
  - ANIMAL SCRATCH [None]
  - CELLULITIS [None]
  - DYSPHONIA [None]
  - POST PROCEDURAL HYPOTHYROIDISM [None]
  - THYROID CANCER [None]
